FAERS Safety Report 6875837-X (Version None)
Quarter: 2010Q3

REPORT INFORMATION
  Report Type: 
  Country: None (occurrence: None)
  Receive Date: 20100727
  Receipt Date: 20070702
  Transmission Date: 20110219
  Serious: Yes (Hospitalization, Other)
  Sender: FDA-Public Use
  Company Number: US-PFIZER INC-2006146890

PATIENT
  Sex: Female
  Weight: 81.6 kg

DRUGS (3)
  1. CELEBREX [Suspect]
     Indication: PAIN
     Route: 048
     Dates: start: 20020508
  2. BEXTRA [Suspect]
     Indication: PAIN
     Route: 048
     Dates: start: 20020724
  3. VIOXX [Suspect]
     Indication: MUSCULOSKELETAL PAIN
     Route: 048
     Dates: start: 20020301, end: 20030618

REACTIONS (1)
  - MYOCARDIAL INFARCTION [None]
